FAERS Safety Report 22604882 (Version 1)
Quarter: 2023Q2

REPORT INFORMATION
  Report Type: Spontaneous
  Country: US (occurrence: US)
  Receive Date: 20230615
  Receipt Date: 20230615
  Transmission Date: 20230722
  Serious: Yes (Hospitalization, Other)
  Sender: FDA-Public Use
  Company Number: US-STRIDES ARCOLAB LIMITED-2023SP009078

PATIENT
  Age: 56 Year
  Sex: Female

DRUGS (9)
  1. MYCOPHENOLATE MOFETIL [Suspect]
     Active Substance: MYCOPHENOLATE MOFETIL
     Indication: Erythema multiforme
     Dosage: 1000 MILLIGRAM, BID
     Route: 065
  2. TACROLIMUS [Suspect]
     Active Substance: TACROLIMUS
     Indication: Erythema multiforme
     Dosage: UNK; CAPSULE; SWISH-AND-SPIT TREATMENT: 1MG CAPSULE DISSOLVED IN 240ML OF WATER
     Route: 061
  3. PREDNISOLONE [Suspect]
     Active Substance: PREDNISOLONE
     Indication: Erythema multiforme
     Dosage: 1 MILLIGRAM/KILOGRAM
     Route: 065
  4. PREDNISOLONE [Suspect]
     Active Substance: PREDNISOLONE
     Dosage: 15 MILLIGRAM; PER DAY; DOSE TAPERED
     Route: 065
  5. LENALIDOMIDE [Suspect]
     Active Substance: LENALIDOMIDE
     Indication: Follicular lymphoma
     Dosage: UNK, CYCLICAL; 2 CYCLES
     Route: 065
  6. APREMILAST [Suspect]
     Active Substance: APREMILAST
     Indication: Erythema multiforme
     Dosage: 30 MILLIGRAM; PER DAY
     Route: 065
  7. TAFASITAMAB [Suspect]
     Active Substance: TAFASITAMAB
     Indication: Follicular lymphoma
     Dosage: UNK, CYCLICAL; 2 CYCLES
     Route: 065
  8. UPADACITINIB [Suspect]
     Active Substance: UPADACITINIB
     Indication: Erythema multiforme
     Dosage: UNK
     Route: 065
  9. UPADACITINIB [Suspect]
     Active Substance: UPADACITINIB
     Dosage: UNK; RE-INITIATED
     Route: 065

REACTIONS (3)
  - Pneumonia [Unknown]
  - Drug ineffective for unapproved indication [Unknown]
  - Disease progression [Unknown]
